FAERS Safety Report 4787251-1 (Version None)
Quarter: 2005Q3

REPORT INFORMATION
  Report Type: 
  Country: None (occurrence: None)
  Receive Date: 20050930
  Receipt Date: 20050916
  Transmission Date: 20060218
  Serious: Yes (Hospitalization)
  Sender: FDA-Public Use
  Company Number: 2005P1000411

PATIENT
  Age: 57 Year
  Sex: Female
  Weight: 85 kg

DRUGS (11)
  1. RETEVASE [Suspect]
     Indication: ACUTE MYOCARDIAL INFARCTION
     Dosage: IV
     Route: 042
     Dates: start: 20050309
  2. ABCIXIMAB (ABCIXIMAB) [Suspect]
     Indication: ACUTE MYOCARDIAL INFARCTION
     Dosage: IV
     Route: 042
     Dates: start: 20050309, end: 20050309
  3. DILTIAZEM [Concomitant]
  4. LEVOTHYROXINE [Concomitant]
  5. ATORVASTATIN [Concomitant]
  6. CLOPIDOGREL [Concomitant]
  7. OMACOR [Concomitant]
  8. ASPIRIN [Concomitant]
  9. AMOXICILLIN [Concomitant]
  10. METHYLPREDNISOLONE [Concomitant]
  11. OMEPRAZOLE [Concomitant]

REACTIONS (1)
  - BRONCHITIS [None]
